FAERS Safety Report 19612303 (Version 1)
Quarter: 2021Q3

REPORT INFORMATION
  Report Type: Spontaneous
  Country: US (occurrence: US)
  Receive Date: 20210726
  Receipt Date: 20210726
  Transmission Date: 20211014
  Serious: Yes (Other)
  Sender: FDA-Public Use
  Company Number: NVSC2021US166457

PATIENT
  Age: 50 Year
  Sex: Male

DRUGS (2)
  1. RANITIDINE. [Suspect]
     Active Substance: RANITIDINE
     Indication: DYSPEPSIA
     Dosage: 150 MG (3 TO 4 TIMES A WEEK)
     Route: 065
     Dates: end: 201712
  2. RANITIDINE. [Suspect]
     Active Substance: RANITIDINE
     Indication: PRODUCT USED FOR UNKNOWN INDICATION
     Dosage: 150 MG (3 TO 4 TIMES A WEEK)
     Route: 065
     Dates: end: 201712

REACTIONS (3)
  - Incorrect dose administered [Unknown]
  - Inappropriate schedule of product administration [Unknown]
  - Prostate cancer stage II [Unknown]

NARRATIVE: CASE EVENT DATE: 20050101
